FAERS Safety Report 25192419 (Version 1)
Quarter: 2025Q2

REPORT INFORMATION
  Report Type: Other
  Country: CN (occurrence: CN)
  Receive Date: 20250414
  Receipt Date: 20250414
  Transmission Date: 20250716
  Serious: Yes (Hospitalization)
  Sender: LYNE LABORATORIES
  Company Number: CN-Lyne Laboratories Inc.-2174828

PATIENT
  Age: 70 Year
  Sex: Male

DRUGS (4)
  1. DEXAMETHASONE [Suspect]
     Active Substance: DEXAMETHASONE
     Indication: Acute promyelocytic leukaemia
  2. ARSENIC TRIOXIDE [Suspect]
     Active Substance: ARSENIC TRIOXIDE
  3. METHOTREXATE [Suspect]
     Active Substance: METHOTREXATE
  4. SALINE [Suspect]
     Active Substance: SODIUM CHLORIDE

REACTIONS (1)
  - Herpes zoster [Recovering/Resolving]
